FAERS Safety Report 25804436 (Version 1)
Quarter: 2025Q3

REPORT INFORMATION
  Report Type: Report from Study
  Country: SA (occurrence: SA)
  Receive Date: 20250915
  Receipt Date: 20250915
  Transmission Date: 20251020
  Serious: Yes (Other)
  Sender: NOVARTIS
  Company Number: SA-002147023-NVSC2025SA142618

PATIENT
  Age: 45 Year
  Sex: Male

DRUGS (2)
  1. LEQVIO [Suspect]
     Active Substance: INCLISIRAN SODIUM
     Indication: Hypercholesterolaemia
     Route: 058
     Dates: start: 20250512
  2. LEQVIO [Suspect]
     Active Substance: INCLISIRAN SODIUM
     Route: 065
     Dates: start: 20250828

REACTIONS (5)
  - Low density lipoprotein increased [Unknown]
  - Blood cholesterol increased [Unknown]
  - High density lipoprotein decreased [Unknown]
  - Glycosylated haemoglobin increased [Unknown]
  - Inappropriate schedule of product administration [Unknown]

NARRATIVE: CASE EVENT DATE: 20250812
